FAERS Safety Report 25147299 (Version 2)
Quarter: 2025Q2

REPORT INFORMATION
  Report Type: Report from Study
  Country: US (occurrence: US)
  Receive Date: 20250401
  Receipt Date: 20250401
  Transmission Date: 20250716
  Serious: No
  Sender: AMGEN
  Company Number: US-AMGEN-USASL2025022098

PATIENT
  Age: 64 Year
  Sex: Male

DRUGS (2)
  1. TEPEZZA [Suspect]
     Active Substance: TEPROTUMUMAB-TRBW
     Indication: Toxic goitre
     Route: 065
     Dates: start: 20241220
  2. TEPEZZA [Suspect]
     Active Substance: TEPROTUMUMAB-TRBW
     Route: 065
     Dates: start: 20250310

REACTIONS (13)
  - Periorbital swelling [Unknown]
  - Tinnitus [Not Recovered/Not Resolved]
  - Nausea [Unknown]
  - Asthenia [Unknown]
  - Dehydration [Unknown]
  - Fatigue [Recovered/Resolved]
  - Hypoacusis [Unknown]
  - Retching [Recovered/Resolved]
  - Eating disorder [Unknown]
  - Weight decreased [Unknown]
  - Vomiting [Recovered/Resolved]
  - Blood electrolytes decreased [Unknown]
  - Malaise [Unknown]

NARRATIVE: CASE EVENT DATE: 20250202
